FAERS Safety Report 5092350-3 (Version None)
Quarter: 2006Q3

REPORT INFORMATION
  Report Type: 
  Country: None (occurrence: None)
  Receive Date: 20060825
  Receipt Date: 20060809
  Transmission Date: 20061208
  Serious: Yes (Life-Threatening, Other)
  Sender: FDA-Public Use
  Company Number: US200605004104

PATIENT
  Age: 56 Year
  Sex: Female

DRUGS (3)
  1. CYMBALTA [Suspect]
     Indication: NEUROPATHY PERIPHERAL
     Dosage: 60 MG
  2. FOSAMAX /ITA/ (ALENDRONATE SODIUM) [Concomitant]
  3. COUMADIN [Concomitant]

REACTIONS (4)
  - OVARIAN CANCER [None]
  - STEVENS-JOHNSON SYNDROME [None]
  - STOMATITIS [None]
  - VULVOVAGINAL DISCOMFORT [None]
